FAERS Safety Report 7376215-X (Version None)
Quarter: 2011Q1

REPORT INFORMATION
  Report Type: 
  Country: None (occurrence: None)
  Receive Date: 20110325
  Receipt Date: 20110321
  Transmission Date: 20110831
  Serious: Yes (Hospitalization, Other)
  Sender: FDA-Public Use
  Company Number: BR-ABBOTT-11P-020-0700267-00

PATIENT
  Sex: Female

DRUGS (3)
  1. HUMIRA [Suspect]
     Dates: end: 20110110
  2. VANCOMYCIN [Suspect]
     Indication: INFECTION
     Route: 042
  3. HUMIRA [Suspect]
     Indication: CROHN'S DISEASE
     Dates: start: 20090101

REACTIONS (14)
  - INTESTINAL POLYP [None]
  - BONE PAIN [None]
  - HAEMORRHAGE [None]
  - INFECTION [None]
  - SACROILIITIS [None]
  - DIARRHOEA [None]
  - COLITIS ULCERATIVE [None]
  - CROHN'S DISEASE [None]
  - SEPSIS [None]
  - ENDOCARDITIS [None]
  - ANKYLOSING SPONDYLITIS [None]
  - FUNGAL INFECTION [None]
  - RENAL FAILURE [None]
  - IMMUNODEFICIENCY [None]
